FAERS Safety Report 17519519 (Version 1)
Quarter: 2020Q1

REPORT INFORMATION
  Report Type: Spontaneous
  Country: FR (occurrence: FR)
  Receive Date: 20200310
  Receipt Date: 20200310
  Transmission Date: 20200409
  Serious: Yes (Hospitalization)
  Sender: FDA-Public Use
  Company Number: FR-TEVA-2020-FR-1195632

PATIENT
  Age: 52 Year
  Sex: Male

DRUGS (2)
  1. MODAFINIL. [Suspect]
     Active Substance: MODAFINIL
     Indication: PRODUCT USED FOR UNKNOWN INDICATION
     Dosage: 400 MILLIGRAM
     Route: 048
     Dates: start: 2019
  2. ALCOOL [Suspect]
     Active Substance: ALCOHOL
     Indication: ALCOHOL USE
     Dosage: UNSPECIFIED
     Route: 048
     Dates: start: 20200116, end: 20200116

REACTIONS (5)
  - Hypertension [Recovered/Resolved]
  - Anxiety [Recovered/Resolved]
  - Sinus tachycardia [Recovered/Resolved]
  - Alcoholism [Recovering/Resolving]
  - Drug abuse [Recovering/Resolving]

NARRATIVE: CASE EVENT DATE: 2019
